FAERS Safety Report 8416961 (Version 6)
Quarter: 2016Q4

REPORT INFORMATION
  Report Type: Report from Study
  Country: JP (occurrence: JP)
  Receive Date: 20120220
  Receipt Date: 20161007
  Transmission Date: 20170207
  Serious: Yes (Hospitalization, Other)
  Sender: FDA-Public Use
  Company Number: JP-GILEAD-2012-0051086

PATIENT
  Age: 50 Year
  Sex: Female
  Weight: 60 kg

DRUGS (59)
  1. INCREMIN                           /00023544/ [Concomitant]
     Indication: IRON DEFICIENCY ANAEMIA
     Dosage: 5ML THREE TIMES PER DAY
     Route: 048
  2. WARFARIN [Concomitant]
     Active Substance: WARFARIN
     Route: 048
  3. SPIRONOLACTONE. [Concomitant]
     Active Substance: SPIRONOLACTONE
     Indication: OEDEMA
     Dosage: UNK
  4. URDENACIN [Concomitant]
     Dosage: 200MG THREE TIMES PER DAY
     Route: 048
  5. URDENACIN [Concomitant]
     Route: 048
  6. REVATIO [Concomitant]
     Active Substance: SILDENAFIL CITRATE
     Dosage: 60MG PER DAY
     Route: 048
  7. REVATIO [Concomitant]
     Active Substance: SILDENAFIL CITRATE
     Dosage: 20MG THREE TIMES PER DAY
     Route: 048
  8. WARFARIN [Concomitant]
     Active Substance: WARFARIN
     Dosage: 1MG PER DAY
     Route: 048
  9. FUROSEMIDE. [Concomitant]
     Active Substance: FUROSEMIDE
     Dosage: 10MG PER DAY
     Route: 048
  10. FUROSEMIDE. [Concomitant]
     Active Substance: FUROSEMIDE
     Route: 048
  11. ALLEGRA [Concomitant]
     Active Substance: FEXOFENADINE HYDROCHLORIDE
     Dosage: 60MG TWICE PER DAY
     Route: 048
  12. LIVACT                             /00847901/ [Concomitant]
     Active Substance: ISOLEUCINE\LEUCINE\VALINE
     Dosage: 1IUAX PER DAY
     Route: 048
  13. SPIRONOLACTONE. [Concomitant]
     Active Substance: SPIRONOLACTONE
     Dosage: 50MG PER DAY
     Route: 048
  14. PARIET [Concomitant]
     Active Substance: RABEPRAZOLE SODIUM
     Dosage: 10MG PER DAY
     Route: 048
  15. PARIET [Concomitant]
     Active Substance: RABEPRAZOLE SODIUM
     Route: 048
  16. FUROSEMIDE. [Concomitant]
     Active Substance: FUROSEMIDE
     Dosage: 10MG PER DAY
     Route: 048
  17. ALLEGRA [Concomitant]
     Active Substance: FEXOFENADINE HYDROCHLORIDE
     Dosage: 60MG TWICE PER DAY
     Route: 048
  18. PROMAC (JAPAN) [Concomitant]
     Route: 048
  19. REVATIO [Concomitant]
     Active Substance: SILDENAFIL CITRATE
     Dosage: 60MG PER DAY
     Route: 048
  20. URSODEOXYCHOLIC ACID [Concomitant]
     Active Substance: URSODIOL
     Dosage: 600MG PER DAY
     Route: 048
  21. FUROSEMIDE. [Concomitant]
     Active Substance: FUROSEMIDE
     Dosage: 10MG PER DAY
     Route: 048
  22. CINAL [Concomitant]
     Active Substance: ASCORBIC ACID\CALCIUM PANTOTHENATE
     Route: 048
  23. ALLEGRA [Concomitant]
     Active Substance: FEXOFENADINE HYDROCHLORIDE
     Indication: RHINITIS ALLERGIC
     Dosage: UNK
  24. INCREMIN C IRON [Concomitant]
     Indication: IRON DEFICIENCY ANAEMIA
     Dosage: 15ML PER DAY
     Route: 048
  25. URDENACIN [Concomitant]
     Dosage: 200MG THREE TIMES PER DAY
     Route: 048
  26. MACACY-A [Concomitant]
     Indication: OEDEMA
     Route: 048
  27. REVATIO [Concomitant]
     Active Substance: SILDENAFIL CITRATE
     Indication: PULMONARY ARTERIAL HYPERTENSION
     Dosage: 60MG PER DAY
  28. REVATIO [Concomitant]
     Active Substance: SILDENAFIL CITRATE
     Dosage: 20MG THREE TIMES PER DAY
     Route: 048
  29. WARFARIN [Concomitant]
     Active Substance: WARFARIN
     Dosage: 1MG PER DAY
     Route: 048
  30. PROMAC                             /00024401/ [Concomitant]
     Active Substance: NITROFURANTOIN
     Dosage: 75MG TWICE PER DAY
     Route: 048
  31. LIVACT [Concomitant]
     Active Substance: AMINO ACIDS
     Route: 048
  32. PARIET [Concomitant]
     Active Substance: RABEPRAZOLE SODIUM
     Dosage: 10MG PER DAY
     Route: 048
  33. PARIET [Concomitant]
     Active Substance: RABEPRAZOLE SODIUM
     Dosage: 10MG PER DAY
     Route: 048
  34. URSODEOXYCHOLIC ACID [Concomitant]
     Active Substance: URSODIOL
     Dosage: UNK
  35. FUROSEMIDE. [Concomitant]
     Active Substance: FUROSEMIDE
     Indication: OEDEMA
     Dosage: UNK
  36. FUROSEMIDE. [Concomitant]
     Active Substance: FUROSEMIDE
     Dosage: 10MG PER DAY
     Route: 048
  37. CINAL [Concomitant]
     Active Substance: ASCORBIC ACID\CALCIUM PANTOTHENATE
     Dosage: 1IUAX THREE TIMES PER DAY
     Route: 048
  38. ALLEGRA [Concomitant]
     Active Substance: FEXOFENADINE HYDROCHLORIDE
     Dosage: 120MG PER DAY
     Route: 048
  39. ALLEGRA [Concomitant]
     Active Substance: FEXOFENADINE HYDROCHLORIDE
     Dosage: 120MG PER DAY
     Route: 048
  40. PROMAC                             /01312301/ [Concomitant]
     Active Substance: POLAPREZINC
     Dosage: UNK
  41. PURSENNID                          /00142207/ [Concomitant]
     Active Substance: SENNOSIDES A AND B
     Indication: CONSTIPATION
     Dosage: 36MG PER DAY
     Route: 048
  42. INCREMIN [Concomitant]
     Active Substance: FERRIC PYROPHOSPHATE
     Indication: IRON DEFICIENCY ANAEMIA
     Route: 048
  43. AMBRISENTAN [Suspect]
     Active Substance: AMBRISENTAN
     Indication: PULMONARY ARTERIAL HYPERTENSION
     Dosage: UNK
     Route: 048
     Dates: start: 20120206, end: 20120207
  44. PARIET [Concomitant]
     Active Substance: RABEPRAZOLE SODIUM
     Indication: PROPHYLAXIS
     Dosage: UNK
  45. URSODEOXYCHOLIC ACID [Concomitant]
     Active Substance: URSODIOL
     Dosage: 600MG PER DAY
     Route: 048
  46. CINAL [Concomitant]
     Active Substance: ASCORBIC ACID\CALCIUM PANTOTHENATE
     Dosage: 3IUAX PER DAY
     Route: 048
  47. CINAL [Concomitant]
     Active Substance: ASCORBIC ACID\CALCIUM PANTOTHENATE
     Dosage: 3IUAX PER DAY
     Route: 048
  48. LIVACT                             /00847901/ [Concomitant]
     Active Substance: ISOLEUCINE\LEUCINE\VALINE
     Dosage: UNK
  49. PURSENNID                          /00142207/ [Concomitant]
     Active Substance: SENNOSIDES A AND B
     Indication: CONSTIPATION
     Dosage: UNK
  50. PURSENNID [Concomitant]
     Active Substance: SENNOSIDES A AND B
     Indication: CONSTIPATION
     Route: 048
  51. REVATIO [Concomitant]
     Active Substance: SILDENAFIL CITRATE
     Route: 048
  52. WARFARIN [Concomitant]
     Active Substance: WARFARIN
     Indication: PORTAL VEIN THROMBOSIS
     Dosage: 1MG PER DAY
  53. WARFARIN [Concomitant]
     Active Substance: WARFARIN
     Dosage: 1MG PER DAY
     Route: 048
  54. WARFARIN [Concomitant]
     Active Substance: WARFARIN
     Dosage: 1MG PER DAY
     Route: 048
  55. SPIRONOLACTONE. [Concomitant]
     Active Substance: SPIRONOLACTONE
     Dosage: 50MG PER DAY
     Route: 048
  56. PARIET [Concomitant]
     Active Substance: RABEPRAZOLE SODIUM
     Dosage: 10MG PER DAY
     Route: 048
  57. CINAL [Concomitant]
     Active Substance: ASCORBIC ACID\CALCIUM PANTOTHENATE
     Dosage: UNK
  58. CINAL [Concomitant]
     Active Substance: ASCORBIC ACID\CALCIUM PANTOTHENATE
     Dosage: 1IUAX THREE TIMES PER DAY
     Route: 048
  59. ALLEGRA [Concomitant]
     Active Substance: FEXOFENADINE HYDROCHLORIDE
     Route: 048

REACTIONS (12)
  - Confusional state [Unknown]
  - Hyperammonaemia [Recovered/Resolved]
  - Abdominal pain [Unknown]
  - Nausea [Unknown]
  - Altered state of consciousness [Recovering/Resolving]
  - Off label use [Unknown]
  - Rash [Unknown]
  - Hepatic encephalopathy [Recovering/Resolving]
  - Decreased appetite [Unknown]
  - Vomiting [Unknown]
  - Mental status changes [Unknown]
  - Abdominal pain upper [Unknown]

NARRATIVE: CASE EVENT DATE: 20120207
